FAERS Safety Report 9895227 (Version 1)
Quarter: 2014Q1

REPORT INFORMATION
  Report Type: Spontaneous
  Country: IT (occurrence: IT)
  Receive Date: 20140213
  Receipt Date: 20140213
  Transmission Date: 20141002
  Serious: Yes (Hospitalization)
  Sender: FDA-Public Use
  Company Number: IT-ABBVIE-14P-083-1200890-00

PATIENT
  Age: 3 Year
  Sex: Female

DRUGS (1)
  1. DEPAKINE [Suspect]
     Indication: EPILEPSY
     Dosage: MODIFIED-RELEASE GRANULES
     Route: 048
     Dates: start: 20130201, end: 20131101

REACTIONS (3)
  - Eye movement disorder [Recovered/Resolved]
  - Grand mal convulsion [Recovered/Resolved]
  - Loss of consciousness [Recovered/Resolved]
